FAERS Safety Report 11266423 (Version 1)
Quarter: 2015Q3

REPORT INFORMATION
  Report Type: Spontaneous
  Country: US (occurrence: US)
  Receive Date: 20150713
  Receipt Date: 20150713
  Transmission Date: 20151125
  Serious: No
  Sender: FDA-Public Use
  Company Number: US-PFIZER INC-2015228078

PATIENT
  Age: 52 Year
  Sex: Male

DRUGS (1)
  1. GABAPENTIN. [Suspect]
     Active Substance: GABAPENTIN
     Indication: PAIN
     Dosage: 2400 MG, 3X/DAY (300MG / 8 TABS / 3 TIMES PER DAY)

REACTIONS (4)
  - Activities of daily living impaired [Unknown]
  - Intentional overdose [Unknown]
  - Drug ineffective [Unknown]
  - Dysarthria [Unknown]
